FAERS Safety Report 10767443 (Version 1)
Quarter: 2015Q1

REPORT INFORMATION
  Report Type: Spontaneous
  Country: CN (occurrence: CN)
  Receive Date: 20150205
  Receipt Date: 20150205
  Transmission Date: 20150721
  Serious: Yes (Death, Other)
  Sender: FDA-Public Use
  Company Number: CN-BAXTER-2015BAX005061

PATIENT
  Age: 49 Year
  Sex: Male

DRUGS (36)
  1. 0.1% LEVOFLOXACIN HYDROCHLORIDE AND 0.9% SODIUM CHLORIDE INJECTION [Suspect]
     Active Substance: LEVOFLOXACIN
     Indication: OFF LABEL USE
     Route: 065
  2. LORATADINE. [Suspect]
     Active Substance: LORATADINE
     Indication: DIFFUSE LARGE B-CELL LYMPHOMA
     Route: 065
  3. VANCOMYCIN [Suspect]
     Active Substance: VANCOMYCIN
     Indication: DIFFUSE LARGE B-CELL LYMPHOMA
     Route: 065
  4. MOXIFLOXACIN [Suspect]
     Active Substance: MOXIFLOXACIN
     Route: 065
  5. MOXIFLOXACIN [Suspect]
     Active Substance: MOXIFLOXACIN
     Route: 065
  6. METHYLPREDNISOLONE. [Suspect]
     Active Substance: METHYLPREDNISOLONE
     Indication: DIFFUSE LARGE B-CELL LYMPHOMA
     Route: 065
  7. METHYLPREDNISOLONE. [Suspect]
     Active Substance: METHYLPREDNISOLONE
     Route: 065
  8. TEICOPLANIN [Suspect]
     Active Substance: TEICOPLANIN
     Route: 065
  9. CEFOPERAZONE SULBACTAM [Suspect]
     Active Substance: CEFOPERAZONE\SULBACTAM
     Indication: DIFFUSE LARGE B-CELL LYMPHOMA
     Route: 065
  10. CIPROFLOXACIN. [Suspect]
     Active Substance: CIPROFLOXACIN
     Route: 065
  11. AMPHOTERICIN B. [Suspect]
     Active Substance: AMPHOTERICIN B
     Route: 065
  12. LINEZOLID. [Suspect]
     Active Substance: LINEZOLID
     Indication: DIFFUSE LARGE B-CELL LYMPHOMA
     Route: 065
  13. MOXIFLOXACIN [Suspect]
     Active Substance: MOXIFLOXACIN
     Route: 065
  14. CASPOFUNGIN [Suspect]
     Active Substance: CASPOFUNGIN
     Route: 065
  15. SULPERAZONE [Suspect]
     Active Substance: CEFOPERAZONE SODIUM\SULBACTAM SODIUM
     Route: 065
  16. TEICOPLANIN [Suspect]
     Active Substance: TEICOPLANIN
     Indication: DIFFUSE LARGE B-CELL LYMPHOMA
     Route: 065
  17. VORICONAZOLE. [Suspect]
     Active Substance: VORICONAZOLE
     Indication: DIFFUSE LARGE B-CELL LYMPHOMA
     Route: 065
  18. RIFAMPICIN [Suspect]
     Active Substance: RIFAMPIN
     Indication: DIFFUSE LARGE B-CELL LYMPHOMA
     Route: 065
  19. METHYLPREDNISOLONE. [Suspect]
     Active Substance: METHYLPREDNISOLONE
     Route: 065
  20. IMIPENEM [Suspect]
     Active Substance: IMIPENEM
     Indication: DIFFUSE LARGE B-CELL LYMPHOMA
     Route: 065
  21. 0.1% LEVOFLOXACIN HYDROCHLORIDE AND 0.9% SODIUM CHLORIDE INJECTION [Suspect]
     Active Substance: LEVOFLOXACIN
     Indication: DIFFUSE LARGE B-CELL LYMPHOMA
     Route: 065
  22. 0.1% FLUCONAZOLE AND 0.9% SODIUM CHLORIDE INJECTION [Suspect]
     Active Substance: FLUCONAZOLE
     Indication: OFF LABEL USE
     Route: 065
  23. RIFAMPICIN [Suspect]
     Active Substance: RIFAMPIN
     Route: 065
  24. METHYLPREDNISOLONE. [Suspect]
     Active Substance: METHYLPREDNISOLONE
     Route: 048
  25. CASPOFUNGIN [Suspect]
     Active Substance: CASPOFUNGIN
     Indication: DIFFUSE LARGE B-CELL LYMPHOMA
     Route: 065
  26. IMIPENEM [Suspect]
     Active Substance: IMIPENEM
     Route: 065
  27. 0.1% FLUCONAZOLE AND 0.9% SODIUM CHLORIDE INJECTION [Suspect]
     Active Substance: FLUCONAZOLE
     Indication: DIFFUSE LARGE B-CELL LYMPHOMA
     Route: 065
  28. MOXIFLOXACIN [Suspect]
     Active Substance: MOXIFLOXACIN
     Indication: DIFFUSE LARGE B-CELL LYMPHOMA
     Route: 065
  29. LORATADINE. [Suspect]
     Active Substance: LORATADINE
     Route: 048
  30. SULPERAZONE [Suspect]
     Active Substance: CEFOPERAZONE SODIUM\SULBACTAM SODIUM
     Indication: DIFFUSE LARGE B-CELL LYMPHOMA
     Route: 065
  31. CEFOPERAZONE SULBACTAM [Suspect]
     Active Substance: CEFOPERAZONE\SULBACTAM
     Route: 065
  32. CIPROFLOXACIN. [Suspect]
     Active Substance: CIPROFLOXACIN
     Indication: DIFFUSE LARGE B-CELL LYMPHOMA
     Route: 065
  33. AMPHOTERICIN B. [Suspect]
     Active Substance: AMPHOTERICIN B
     Indication: DIFFUSE LARGE B-CELL LYMPHOMA
     Route: 065
  34. LINEZOLID. [Suspect]
     Active Substance: LINEZOLID
     Route: 065
  35. RIFAMPICIN [Suspect]
     Active Substance: RIFAMPIN
     Route: 065
  36. METHYLPREDNISOLONE. [Suspect]
     Active Substance: METHYLPREDNISOLONE
     Route: 065

REACTIONS (2)
  - Drug ineffective [Not Recovered/Not Resolved]
  - Respiratory failure [Fatal]
